FAERS Safety Report 6208383-7 (Version None)
Quarter: 2009Q2

REPORT INFORMATION
  Report Type: 
  Country: None (occurrence: None)
  Receive Date: 20090529
  Receipt Date: 20090520
  Transmission Date: 20091009
  Serious: Yes (Other)
  Sender: FDA-Public Use
  Company Number: US-BIOGENIDEC-2009BI014246

PATIENT
  Age: 37 Year
  Sex: Female

DRUGS (1)
  1. AVONEX [Suspect]
     Indication: MULTIPLE SCLEROSIS
     Route: 030
     Dates: start: 20030101, end: 20090422

REACTIONS (5)
  - AMNESIA [None]
  - BALANCE DISORDER [None]
  - LUMBAR RADICULOPATHY [None]
  - MUSCLE SPASMS [None]
  - SPINAL OSTEOARTHRITIS [None]
